FAERS Safety Report 9789782 (Version 2)
Quarter: 2014Q1

REPORT INFORMATION
  Report Type: Spontaneous
  Country: BR (occurrence: BR)
  Receive Date: 20131231
  Receipt Date: 20140103
  Transmission Date: 20141002
  Serious: Yes (Other)
  Sender: FDA-Public Use
  Company Number: BR-ASTRAZENECA-2013SE93314

PATIENT
  Age: 12 Month
  Sex: Female

DRUGS (1)
  1. MERONEM [Suspect]
     Dosage: EIGHT TIMES A DAY
     Route: 042
     Dates: start: 20131030, end: 20131113

REACTIONS (1)
  - Platelet function test abnormal [Recovered/Resolved]
